FAERS Safety Report 20594514 (Version 6)
Quarter: 2023Q4

REPORT INFORMATION
  Report Type: Report from Study
  Country: JP (occurrence: JP)
  Receive Date: 20220315
  Receipt Date: 20231116
  Transmission Date: 20240110
  Serious: Yes (Death, Hospitalization, Other)
  Sender: FDA-Public Use
  Company Number: JP-ASTELLAS-2022JP004220

PATIENT
  Age: 71 Year
  Sex: Male

DRUGS (5)
  1. ENFORTUMAB VEDOTIN [Suspect]
     Active Substance: ENFORTUMAB VEDOTIN
     Indication: Transitional cell carcinoma
     Dosage: 0.83 MG/KG, UNKNOWN FREQ.
     Route: 041
     Dates: start: 20220126, end: 20220309
  2. KEYTRUDA [Suspect]
     Active Substance: PEMBROLIZUMAB
     Indication: Transitional cell carcinoma
     Dosage: UNK UNK, UNKNOWN FREQ.
     Route: 065
     Dates: start: 20211117, end: 20220105
  3. KEYTRUDA [Suspect]
     Active Substance: PEMBROLIZUMAB
     Dosage: UNK UNK, UNKNOWN FREQ.
     Route: 065
  4. PREDONINE [Suspect]
     Active Substance: PREDNISOLONE
     Indication: Dermatitis atopic
     Route: 048
  5. PREDONINE [Suspect]
     Active Substance: PREDNISOLONE
     Route: 048

REACTIONS (2)
  - Small intestinal perforation [Fatal]
  - Inappropriate schedule of product administration [Unknown]

NARRATIVE: CASE EVENT DATE: 20220309
